FAERS Safety Report 18496610 (Version 1)
Quarter: 2020Q4

REPORT INFORMATION
  Report Type: Spontaneous
  Country: DE (occurrence: DE)
  Receive Date: 20201112
  Receipt Date: 20201112
  Transmission Date: 20210114
  Serious: Yes (Hospitalization, Other)
  Sender: FDA-Public Use
  Company Number: DE-009507513-2011DEU005189

PATIENT
  Sex: Male

DRUGS (4)
  1. NACOM 100 MG/25 MG TABLETTEN [Suspect]
     Active Substance: CARBIDOPA\LEVODOPA
     Indication: PARKINSON^S DISEASE
     Dosage: 1.5 X NACOM 100 MG (EVERY 4 HOURS FROM 6:00 AM TO 8:00 PM): STRENGTH REPORTED AS 100 MG
     Route: 048
     Dates: start: 2017, end: 2020
  2. NACOM RETARD [Suspect]
     Active Substance: CARBIDOPA\LEVODOPA
     Dosage: 5 X 200 MG
     Route: 048
     Dates: start: 202009
  3. NACOM RETARD [Suspect]
     Active Substance: CARBIDOPA\LEVODOPA
     Indication: PARKINSON^S DISEASE
     Dosage: 1 X 200 MG AT 10:00 PM
     Route: 048
     Dates: start: 2019, end: 2020
  4. NACOM RETARD [Suspect]
     Active Substance: CARBIDOPA\LEVODOPA
     Indication: PARKINSON^S DISEASE
     Dosage: 2 X 100 MG AT 10:00 PM
     Route: 048
     Dates: start: 2017, end: 2019

REACTIONS (6)
  - Paralysis [Unknown]
  - Musculoskeletal stiffness [Unknown]
  - Gastritis [Unknown]
  - Parkinson^s disease [Unknown]
  - Abdominal discomfort [Unknown]
  - Foreign body in throat [Unknown]

NARRATIVE: CASE EVENT DATE: 2019
